FAERS Safety Report 9542720 (Version 1)
Quarter: 2013Q3

REPORT INFORMATION
  Report Type: Spontaneous
  Country: US (occurrence: US)
  Receive Date: 20130923
  Receipt Date: 20130923
  Transmission Date: 20140515
  Serious: No
  Sender: FDA-Public Use
  Company Number: US-PFIZER INC-2013271630

PATIENT
  Age: 67 Year
  Sex: Male

DRUGS (1)
  1. CHANTIX [Suspect]
     Indication: SMOKING CESSATION THERAPY
     Dosage: UNK

REACTIONS (6)
  - Weight increased [Unknown]
  - Eating disorder [Unknown]
  - Hypertension [Unknown]
  - Vital functions abnormal [Unknown]
  - Depressed mood [Unknown]
  - Weight decreased [Unknown]
